FAERS Safety Report 13360448 (Version 1)
Quarter: 2017Q1

REPORT INFORMATION
  Report Type: Spontaneous
  Country: US (occurrence: US)
  Receive Date: 20170322
  Receipt Date: 20170322
  Transmission Date: 20170429
  Serious: Yes (Hospitalization)
  Sender: FDA-Public Use
  Company Number: US-TEVA-750720USA

PATIENT
  Age: 15 Year
  Sex: Male

DRUGS (2)
  1. CHILDRENS IBUPROFEN [Suspect]
     Active Substance: IBUPROFEN
     Indication: DIZZINESS
     Dosage: HIGH DOSE
     Route: 065
  2. CHILDRENS IBUPROFEN [Suspect]
     Active Substance: IBUPROFEN
     Indication: HEADACHE
     Dosage: HIGH DOSE
     Route: 065

REACTIONS (2)
  - Peptic ulcer [Recovered/Resolved]
  - Anaemia [Recovered/Resolved]
